FAERS Safety Report 16103328 (Version 2)
Quarter: 2019Q2

REPORT INFORMATION
  Report Type: Report from Study
  Country: None (occurrence: US)
  Receive Date: 20190322
  Receipt Date: 20190419
  Transmission Date: 20190711
  Serious: Yes (Hospitalization)
  Sender: FDA-Public Use
  Company Number: US-ABBVIE-19K-163-2707686-00

PATIENT
  Sex: Female

DRUGS (2)
  1. HUMIRA [Suspect]
     Active Substance: ADALIMUMAB
     Indication: PSORIASIS
  2. HUMIRA [Suspect]
     Active Substance: ADALIMUMAB
     Indication: PSORIATIC ARTHROPATHY
     Route: 058

REACTIONS (7)
  - Insomnia [Not Recovered/Not Resolved]
  - Psoriasis [Recovering/Resolving]
  - Gastrointestinal infection [Recovered/Resolved]
  - Micturition urgency [Recovering/Resolving]
  - Wound secretion [Recovered/Resolved]
  - Diabetes mellitus [Unknown]
  - Pain [Unknown]
